FAERS Safety Report 12447228 (Version 1)
Quarter: 2016Q2

REPORT INFORMATION
  Report Type: Spontaneous
  Country: US (occurrence: US)
  Receive Date: 20160608
  Receipt Date: 20160608
  Transmission Date: 20160815
  Serious: No
  Sender: FDA-Public Use
  Company Number: US-ASTRAZENECA-2016SE41370

PATIENT
  Sex: Female

DRUGS (2)
  1. TRAMADOL. [Concomitant]
     Active Substance: TRAMADOL
  2. CRESTOR [Suspect]
     Active Substance: ROSUVASTATIN CALCIUM
     Route: 048

REACTIONS (10)
  - Blood creatinine increased [Unknown]
  - Musculoskeletal pain [Unknown]
  - Iodine allergy [Unknown]
  - Migraine [Unknown]
  - Food allergy [Unknown]
  - Fatigue [Unknown]
  - Neck injury [Unknown]
  - Neck pain [Unknown]
  - Adverse event [Unknown]
  - Back injury [Unknown]
